FAERS Safety Report 17626602 (Version 1)
Quarter: 2020Q2

REPORT INFORMATION
  Report Type: Report from Study
  Country: JP (occurrence: JP)
  Receive Date: 20200405
  Receipt Date: 20200405
  Transmission Date: 20200713
  Serious: Yes (Other)
  Sender: FDA-Public Use
  Company Number: JP-PBT-000275

PATIENT
  Age: 66 Year

DRUGS (4)
  1. PREDNISOLONE. [Suspect]
     Active Substance: PREDNISOLONE
     Indication: INTERSTITIAL LUNG DISEASE
     Route: 065
  2. TACROLIMUS. [Suspect]
     Active Substance: TACROLIMUS
     Indication: DERMATOMYOSITIS
     Route: 065
  3. TACROLIMUS. [Suspect]
     Active Substance: TACROLIMUS
     Indication: INTERSTITIAL LUNG DISEASE
     Route: 065
  4. PREDNISOLONE. [Suspect]
     Active Substance: PREDNISOLONE
     Indication: DERMATOMYOSITIS
     Route: 065

REACTIONS (13)
  - Glaucoma [Unknown]
  - Tremor [Unknown]
  - Herpes zoster [Unknown]
  - Dermatomyositis [Unknown]
  - Hypothyroidism [Unknown]
  - Product use in unapproved indication [Unknown]
  - Cystitis viral [Unknown]
  - Cytomegalovirus infection reactivation [Unknown]
  - Hyperglycaemia [Unknown]
  - Oesophageal candidiasis [Unknown]
  - Disease recurrence [Unknown]
  - Interstitial lung disease [Unknown]
  - IIIrd nerve paralysis [Unknown]
